FAERS Safety Report 17426574 (Version 1)
Quarter: 2020Q1

REPORT INFORMATION
  Report Type: Spontaneous
  Country: CN (occurrence: CN)
  Receive Date: 20200218
  Receipt Date: 20200218
  Transmission Date: 20200409
  Serious: Yes (Other)
  Sender: FDA-Public Use
  Company Number: CN-ALKEM LABORATORIES LIMITED-CN-ALKEM-2019-09269

PATIENT

DRUGS (2)
  1. LINEZOLID. [Suspect]
     Active Substance: LINEZOLID
     Dosage: 0.6 GRAM, BID
     Route: 065
  2. LINEZOLID. [Suspect]
     Active Substance: LINEZOLID
     Indication: TUBERCULOSIS
     Dosage: 0.6 GRAM, QD
     Route: 065

REACTIONS (3)
  - Nausea [Recovered/Resolved]
  - Blood lactic acid increased [Recovered/Resolved]
  - Vomiting [Recovered/Resolved]
